FAERS Safety Report 12807145 (Version 1)
Quarter: 2016Q4

REPORT INFORMATION
  Report Type: Spontaneous
  Country: US (occurrence: US)
  Receive Date: 20161003
  Receipt Date: 20161003
  Transmission Date: 20170207
  Serious: No
  Sender: FDA-Public Use
  Company Number: None

PATIENT
  Sex: Female

DRUGS (1)
  1. HYOSCYAMINE. [Suspect]
     Active Substance: HYOSCYAMINE
     Dosage: ?          QUANTITY:30 TABLET(S);?
     Route: 060

REACTIONS (3)
  - Somnolence [None]
  - Headache [None]
  - Dizziness [None]
